FAERS Safety Report 22118823 (Version 5)
Quarter: 2023Q4

REPORT INFORMATION
  Report Type: Report from Study
  Country: GB (occurrence: GB)
  Receive Date: 20230321
  Receipt Date: 20231010
  Transmission Date: 20240110
  Serious: Yes (Other)
  Sender: FDA-Public Use
  Company Number: GB-002147023-PHHY2019GB112944

PATIENT
  Age: 41 Year
  Sex: Female
  Weight: 42.8 kg

DRUGS (5)
  1. COSENTYX [Suspect]
     Active Substance: SECUKINUMAB
     Indication: Ankylosing spondylitis
     Dosage: 150 MG
     Route: 065
     Dates: start: 20171229, end: 20180125
  2. COSENTYX [Suspect]
     Active Substance: SECUKINUMAB
     Dosage: 150 MG
     Route: 065
     Dates: start: 20180125, end: 20181130
  3. COSENTYX [Suspect]
     Active Substance: SECUKINUMAB
     Dosage: 300 MG
     Route: 065
     Dates: start: 20181201, end: 201910
  4. COSENTYX [Suspect]
     Active Substance: SECUKINUMAB
     Dosage: 300 MG
     Route: 065
     Dates: start: 201911
  5. METHOTREXATE [Concomitant]
     Active Substance: METHOTREXATE
     Indication: Ankylosing spondylitis
     Dosage: 15 MG
     Route: 065
     Dates: start: 20181102, end: 20211119

REACTIONS (11)
  - Kidney infection [Recovered/Resolved]
  - Joint swelling [Not Recovered/Not Resolved]
  - Joint effusion [Recovering/Resolving]
  - Meniscus injury [Recovered/Resolved]
  - Meniscus cyst [Recovered/Resolved]
  - Eye pain [Not Recovered/Not Resolved]
  - Mouth ulceration [Recovering/Resolving]
  - Paronychia [Recovered/Resolved]
  - Musculoskeletal chest pain [Not Recovered/Not Resolved]
  - Costochondritis [Not Recovered/Not Resolved]
  - Back pain [Not Recovered/Not Resolved]

NARRATIVE: CASE EVENT DATE: 20181102
